FAERS Safety Report 8735563 (Version 2)
Quarter: 2013Q3

REPORT INFORMATION
  Report Type: Spontaneous
  Country: US (occurrence: US)
  Receive Date: 20120822
  Receipt Date: 20130827
  Transmission Date: 20140515
  Serious: No
  Sender: FDA-Public Use
  Company Number: US-PFIZER INC-2012202689

PATIENT
  Age: 81 Year
  Sex: Female
  Weight: 85.3 kg

DRUGS (3)
  1. TIKOSYN [Suspect]
     Indication: ATRIAL FIBRILLATION
     Dosage: 500 UG, 2X/DAY
     Route: 048
     Dates: start: 20120723
  2. ASPIRIN [Concomitant]
     Dosage: 81 MG, UNK
  3. COZAAR [Concomitant]
     Indication: HYPERTENSION
     Dosage: 50 MG, 1X/DAY

REACTIONS (4)
  - Heart rate increased [Unknown]
  - Dry mouth [Unknown]
  - Dizziness [Unknown]
  - Dry eye [Unknown]
